FAERS Safety Report 5408197-1 (Version None)
Quarter: 2007Q3

REPORT INFORMATION
  Report Type: 
  Country: None (occurrence: None)
  Receive Date: 20070808
  Receipt Date: 20070808
  Transmission Date: 20080115
  Serious: Yes (Hospitalization, Other)
  Sender: FDA-Public Use
  Company Number: None

PATIENT
  Age: 40 Year
  Weight: 79.99 kg

DRUGS (5)
  1. KETEK [Suspect]
     Indication: COUGH
     Dosage: 800 MG/DAY
     Dates: start: 20060912, end: 20060916
  2. KETEK [Suspect]
     Indication: COUGH
     Dosage: 800 MG/DAY
     Dates: start: 20060912, end: 20060917
  3. HERCEPTIN [Suspect]
     Indication: BREAST CANCER
     Dosage: 480 MG IV Q 3 WKS
     Route: 042
     Dates: start: 20060531
  4. ZOLOFT [Concomitant]
  5. ATIVAN [Concomitant]

REACTIONS (8)
  - BLOOD SODIUM DECREASED [None]
  - CONVULSION [None]
  - CORONARY ARTERY DISEASE [None]
  - DIZZINESS [None]
  - ELECTROCARDIOGRAM ABNORMAL [None]
  - LOSS OF CONSCIOUSNESS [None]
  - PULSE ABSENT [None]
  - SYNCOPE VASOVAGAL [None]
